FAERS Safety Report 24651850 (Version 1)
Quarter: 2024Q4

REPORT INFORMATION
  Report Type: Spontaneous
  Country: US (occurrence: US)
  Receive Date: 20241122
  Receipt Date: 20241122
  Transmission Date: 20250115
  Serious: No
  Sender: ALVOGEN
  Company Number: US-ALVOGEN-2024094531

PATIENT
  Sex: Female

DRUGS (2)
  1. TERIPARATIDE [Suspect]
     Active Substance: TERIPARATIDE
     Indication: Product used for unknown indication
     Dosage: EXPIRATION DATE: 31-DEC-2024?NOT STARTED TO USE?RECEIVED ON 23-APR-2024
  2. TERIPARATIDE [Suspect]
     Active Substance: TERIPARATIDE
     Indication: Product used for unknown indication
     Dosage: TOOK 29TH DOSE FROM THAT PEN ON?24-APR-2024
     Dates: start: 20240327

REACTIONS (4)
  - Device use issue [Unknown]
  - Device physical property issue [Unknown]
  - Device malfunction [Unknown]
  - Product use issue [Unknown]

NARRATIVE: CASE EVENT DATE: 20240401
